FAERS Safety Report 26157224 (Version 1)
Quarter: 2025Q4

REPORT INFORMATION
  Report Type: Spontaneous
  Country: KR (occurrence: KR)
  Receive Date: 20251215
  Receipt Date: 20251215
  Transmission Date: 20260117
  Serious: No
  Sender: ASTELLAS
  Company Number: KR-ASTELLAS-2025-AER-068727

PATIENT
  Sex: Female

DRUGS (1)
  1. VESICARE [Suspect]
     Active Substance: SOLIFENACIN SUCCINATE
     Indication: Cystitis
     Route: 065
     Dates: start: 20250217, end: 20250309

REACTIONS (2)
  - Polydipsia [Recovered/Resolved]
  - Product use in unapproved indication [Unknown]

NARRATIVE: CASE EVENT DATE: 20250217
